FAERS Safety Report 23810821 (Version 2)
Quarter: 2024Q2

REPORT INFORMATION
  Report Type: Spontaneous
  Country: US (occurrence: None)
  Receive Date: 20240502
  Receipt Date: 20240508
  Transmission Date: 20240716
  Serious: Yes (Disabling, Other)
  Sender: FDA-Public Use
  Company Number: 2024A098824

PATIENT
  Sex: Male

DRUGS (1)
  1. SYMBICORT [Suspect]
     Active Substance: BUDESONIDE\FORMOTEROL FUMARATE DIHYDRATE
     Dosage: 160MG,UNKNOWN UNKNOWN
     Route: 055

REACTIONS (20)
  - Blindness unilateral [Unknown]
  - Retinal detachment [Unknown]
  - Meniere^s disease [Unknown]
  - Fall [Unknown]
  - Bordetella infection [Unknown]
  - Head injury [Unknown]
  - Dental restoration failure [Unknown]
  - Tooth disorder [Unknown]
  - Toothache [Unknown]
  - Taste disorder [Unknown]
  - Crying [Unknown]
  - Dyspnoea [Unknown]
  - Oxygen saturation decreased [Unknown]
  - Visual impairment [Unknown]
  - Autoimmune disorder [Unknown]
  - Colitis microscopic [Unknown]
  - Spondylitis [Unknown]
  - Wrong technique in device usage process [Unknown]
  - Incorrect dose administered by device [Unknown]
  - Device use issue [Unknown]
